FAERS Safety Report 14831116 (Version 1)
Quarter: 2018Q2

REPORT INFORMATION
  Report Type: Spontaneous
  Country: US (occurrence: US)
  Receive Date: 20180501
  Receipt Date: 20180501
  Transmission Date: 20180711
  Serious: No
  Sender: FDA-Public Use
  Company Number: US-B.I. PHARMACEUTICALS,INC./RIDGEFIELD-2018-BI-022616

PATIENT
  Sex: Female

DRUGS (2)
  1. JARDIANCE [Suspect]
     Active Substance: EMPAGLIFLOZIN
     Dosage: STRENGTH: 10MG; FORMULATION: TABLETADMINISTRATION CORRECT? NRACTION(S) TAKEN: DRUG WITHDRAWN
     Route: 048
  2. JARDIANCE [Suspect]
     Active Substance: EMPAGLIFLOZIN
     Indication: TYPE 2 DIABETES MELLITUS
     Dosage: STRENGTH: 25 MG; FORMULATION: TABLET ADMINISTRATION CORRECT? NRACTION(S) TAKEN: DRUG REDUCED
     Route: 048

REACTIONS (1)
  - Fungal infection [Unknown]
